FAERS Safety Report 12339308 (Version 17)
Quarter: 2019Q2

REPORT INFORMATION
  Report Type: Spontaneous
  Country: JP (occurrence: JP)
  Receive Date: 20160505
  Receipt Date: 20190419
  Transmission Date: 20190711
  Serious: Yes (Hospitalization, Other)
  Sender: FDA-Public Use
  Company Number: JP-BIOGEN-2016BI00228458

PATIENT
  Age: 13 Month
  Sex: Male
  Weight: 9.4 kg

DRUGS (45)
  1. ALPROLIX [Suspect]
     Active Substance: EFTRENONACOG ALFA
     Indication: IMMUNE TOLERANCE INDUCTION
     Dosage: 1000 IU, Q3D
     Route: 042
     Dates: start: 20160421, end: 20160512
  2. ALPROLIX [Suspect]
     Active Substance: EFTRENONACOG ALFA
     Dosage: 1000 IU, QD
     Route: 042
     Dates: start: 20170523, end: 20170814
  3. DECADRON [Concomitant]
     Active Substance: DEXAMETHASONE
     Dosage: 1 MG
     Route: 048
     Dates: start: 20160520, end: 20160520
  4. DECADRON [Concomitant]
     Active Substance: DEXAMETHASONE
     Dosage: 1 MG
     Route: 048
     Dates: start: 20160627, end: 20160627
  5. NOVOSEVEN [Concomitant]
     Active Substance: COAGULATION FACTOR VIIA RECOMBINANT HUMAN
     Dosage: 1 MG, BIW
     Route: 042
     Dates: start: 20170110, end: 20170125
  6. NOVOSEVEN [Concomitant]
     Active Substance: COAGULATION FACTOR VIIA RECOMBINANT HUMAN
     Dosage: 1 MG
     Route: 042
     Dates: start: 20170205, end: 20170510
  7. MAGNESIUM OXIDE. [Concomitant]
     Active Substance: MAGNESIUM OXIDE
     Indication: PRODUCT USED FOR UNKNOWN INDICATION
     Route: 065
     Dates: start: 20160506
  8. DOMPERIDONE [Concomitant]
     Active Substance: DOMPERIDONE
     Dosage: UNK
     Route: 065
     Dates: start: 20160613, end: 20160615
  9. EPINASTINE HYDROCHLORIDE. [Concomitant]
     Active Substance: EPINASTINE HYDROCHLORIDE
     Indication: PRODUCT USED FOR UNKNOWN INDICATION
     Route: 048
     Dates: start: 20161116, end: 20161213
  10. INCREMIN [FERRIC PYROPHOSPHATE] [Concomitant]
     Indication: PRODUCT USED FOR UNKNOWN INDICATION
     Dosage: UNK
     Route: 065
     Dates: start: 20160113
  11. ATARAX-P [HYDROXYZINE HYDROCHLORIDE] [Concomitant]
     Dosage: 12.5 MG, TIW
     Route: 042
     Dates: start: 20160624, end: 20170727
  12. ATARAX-P [HYDROXYZINE HYDROCHLORIDE] [Concomitant]
     Dosage: DOSE UNKNOWN
     Route: 042
     Dates: start: 20160523, end: 20160524
  13. DECADRON [Concomitant]
     Active Substance: DEXAMETHASONE
     Indication: PRODUCT USED FOR UNKNOWN INDICATION
     Dosage: 2 MG
     Route: 048
     Dates: start: 20160518, end: 20160518
  14. SYNAGIS [Concomitant]
     Active Substance: PALIVIZUMAB
     Indication: ANTIVIRAL PROPHYLAXIS
     Route: 030
     Dates: start: 201509, end: 201603
  15. NOVOSEVEN [Concomitant]
     Active Substance: COAGULATION FACTOR VIIA RECOMBINANT HUMAN
     Dosage: 1 MG
     Route: 042
     Dates: start: 20161211, end: 20170107
  16. SOL-MELCORT [Concomitant]
     Active Substance: METHYLPREDNISOLONE SODIUM SUCCINATE
     Dosage: 15 MG, QD
     Route: 042
     Dates: start: 20170523, end: 20170525
  17. ANHIBA [Concomitant]
     Active Substance: ACETAMINOPHEN
     Indication: PYREXIA
     Dosage: PRN
     Route: 050
     Dates: start: 20160524
  18. ALPROLIX [Suspect]
     Active Substance: EFTRENONACOG ALFA
     Indication: FACTOR IX DEFICIENCY
     Dosage: 500 IU, QW
     Route: 042
     Dates: start: 20160113, end: 20160415
  19. NOVOSEVEN [Concomitant]
     Active Substance: COAGULATION FACTOR VIIA RECOMBINANT HUMAN
     Dosage: 1 MG
     Route: 042
     Dates: start: 20160825, end: 20160826
  20. NOVOSEVEN [Concomitant]
     Active Substance: COAGULATION FACTOR VIIA RECOMBINANT HUMAN
     Dosage: 1 MG
     Route: 042
     Dates: start: 20161021, end: 20161027
  21. SOL-MELCORT [Concomitant]
     Active Substance: METHYLPREDNISOLONE SODIUM SUCCINATE
     Dosage: 10 MG
     Route: 042
     Dates: start: 20160530, end: 20160603
  22. PREDONINE [Concomitant]
     Active Substance: PREDNISOLONE
     Indication: PYREXIA
     Route: 065
     Dates: start: 20160708, end: 20160708
  23. ATARAX-P [HYDROXYZINE HYDROCHLORIDE] [Concomitant]
     Indication: PRODUCT USED FOR UNKNOWN INDICATION
     Dosage: 10 MG, TIW
     Route: 042
     Dates: start: 20160421, end: 20160622
  24. ATARAX-P [HYDROXYZINE HYDROCHLORIDE] [Concomitant]
     Dosage: 10 MG
     Route: 042
     Dates: start: 20160825, end: 20160825
  25. NOVOSEVEN [Concomitant]
     Active Substance: COAGULATION FACTOR VIIA RECOMBINANT HUMAN
     Dosage: 1 MG, BIW
     Route: 042
     Dates: start: 20161102, end: 20161210
  26. METOCLOPRAMIDE. [Concomitant]
     Active Substance: METOCLOPRAMIDE
     Indication: PRODUCT USED FOR UNKNOWN INDICATION
     Route: 065
     Dates: start: 20160425, end: 20160627
  27. PERIACTIN [Concomitant]
     Active Substance: CYPROHEPTADINE HYDROCHLORIDE
     Indication: PRODUCT USED FOR UNKNOWN INDICATION
     Route: 065
     Dates: start: 20160523
  28. PIPERACILLIN SODIUM [Concomitant]
     Active Substance: PIPERACILLIN SODIUM
     Indication: PRODUCT USED FOR UNKNOWN INDICATION
     Route: 048
     Dates: start: 20160524, end: 20160528
  29. ALPROLIX [Suspect]
     Active Substance: EFTRENONACOG ALFA
     Dosage: 1000 IU, TIW
     Route: 042
     Dates: start: 20160516, end: 20160822
  30. NOVOSEVEN [Concomitant]
     Active Substance: COAGULATION FACTOR VIIA RECOMBINANT HUMAN
     Indication: FACTOR IX DEFICIENCY
     Dosage: 1 MG
     Route: 042
     Dates: start: 20160523, end: 20160810
  31. NOVOSEVEN [Concomitant]
     Active Substance: COAGULATION FACTOR VIIA RECOMBINANT HUMAN
     Dosage: 1 MG
     Route: 042
     Dates: start: 20160906, end: 20161017
  32. SOL-MELCORT [Concomitant]
     Active Substance: METHYLPREDNISOLONE SODIUM SUCCINATE
     Indication: PRODUCT USED FOR UNKNOWN INDICATION
     Dosage: 10 MG, BIW
     Route: 042
     Dates: start: 20160421, end: 20160502
  33. SOL-MELCORT [Concomitant]
     Active Substance: METHYLPREDNISOLONE SODIUM SUCCINATE
     Dosage: 4 MG
     Route: 042
     Dates: start: 20160506, end: 20160506
  34. CARBOCISTEINE [Concomitant]
     Active Substance: CARBOCYSTEINE
     Indication: PRODUCT USED FOR UNKNOWN INDICATION
     Route: 048
     Dates: start: 20160523
  35. AMBROXOL HYDROCHLORIDE [Concomitant]
     Active Substance: AMBROXOL HYDROCHLORIDE
     Indication: PRODUCT USED FOR UNKNOWN INDICATION
     Route: 048
     Dates: start: 20160516
  36. DECADRON [Concomitant]
     Active Substance: DEXAMETHASONE
     Dosage: 2 MG
     Route: 048
     Dates: start: 20160608, end: 20160622
  37. DECADRON [Concomitant]
     Active Substance: DEXAMETHASONE
     Dosage: 2 MG
     Route: 048
     Dates: start: 20160523, end: 20160523
  38. DOMPERIDONE [Concomitant]
     Active Substance: DOMPERIDONE
     Indication: PRODUCT USED FOR UNKNOWN INDICATION
     Route: 065
     Dates: start: 20160511, end: 20160516
  39. ASVERIN (TIPEPIDINE HIBENZATE) [Concomitant]
     Active Substance: TIPEPIDINE HIBENZATE
     Indication: PRODUCT USED FOR UNKNOWN INDICATION
     Route: 065
     Dates: start: 20160523
  40. HYDROXYZINE PAMOATE. [Concomitant]
     Active Substance: HYDROXYZINE PAMOATE
     Indication: PRODUCT USED FOR UNKNOWN INDICATION
     Dosage: PRN
     Route: 048
     Dates: start: 20160624, end: 20160810
  41. HEPARIN SODIUM. [Concomitant]
     Active Substance: HEPARIN SODIUM
     Indication: PRODUCT USED FOR UNKNOWN INDICATION
     Route: 042
     Dates: start: 20160420, end: 20161217
  42. INCREMIN [FERRIC PYROPHOSPHATE] [Concomitant]
     Dosage: UNK
     Route: 048
     Dates: start: 20160421, end: 20161201
  43. DECADRON [Concomitant]
     Active Substance: DEXAMETHASONE
     Dosage: 1 MG
     Route: 048
     Dates: start: 20160624, end: 20160624
  44. SOL-MELCORT [Concomitant]
     Active Substance: METHYLPREDNISOLONE SODIUM SUCCINATE
     Dosage: 10 MG, QD
     Route: 042
     Dates: start: 20170526, end: 20170528
  45. ACETAMINOPHEN. [Concomitant]
     Active Substance: ACETAMINOPHEN
     Indication: PRODUCT USED FOR UNKNOWN INDICATION
     Route: 048
     Dates: start: 20160516

REACTIONS (14)
  - Epistaxis [Unknown]
  - Sepsis [Recovered/Resolved]
  - Hyperthermia [Recovered/Resolved]
  - Proteinuria [Not Recovered/Not Resolved]
  - Nephritis [Not Recovered/Not Resolved]
  - Hypersensitivity [Recovered/Resolved]
  - Nephrotic syndrome [Recovered/Resolved]
  - Anaphylactic reaction [Recovered/Resolved]
  - Device related infection [Recovered/Resolved]
  - Off label use [Unknown]
  - Factor IX inhibition [Not Recovered/Not Resolved]
  - Staphylococcal infection [Recovered/Resolved]
  - Oedema [Recovered/Resolved]
  - Staphylococcal infection [Recovered/Resolved]

NARRATIVE: CASE EVENT DATE: 20160304
